FAERS Safety Report 6829599-2 (Version None)
Quarter: 2010Q3

REPORT INFORMATION
  Report Type: 
  Country: None (occurrence: None)
  Receive Date: 20100709
  Receipt Date: 20070410
  Transmission Date: 20110219
  Serious: No
  Sender: FDA-Public Use
  Company Number: US-PFIZER INC-2007015829

PATIENT
  Sex: Female
  Weight: 64.4 kg

DRUGS (6)
  1. CHANTIX [Suspect]
     Indication: SMOKING CESSATION THERAPY
     Route: 048
     Dates: start: 20061201, end: 20070101
  2. EVISTA [Concomitant]
  3. LIPITOR [Concomitant]
  4. CITRUCEL [Concomitant]
  5. ACETYLSALICYLIC ACID [Concomitant]
  6. DIAZEPAM [Concomitant]

REACTIONS (3)
  - DYSGEUSIA [None]
  - POLLAKIURIA [None]
  - WEIGHT INCREASED [None]
